FAERS Safety Report 10171655 (Version 2)
Quarter: 2014Q2

REPORT INFORMATION
  Report Type: Spontaneous
  Country: US (occurrence: None)
  Receive Date: 20140512
  Receipt Date: 20140611
  Transmission Date: 20141212
  Serious: Yes (Other)
  Sender: FDA-Public Use
  Company Number: 2014040072

PATIENT
  Age: 54 Year
  Sex: Female
  Weight: 54.43 kg

DRUGS (2)
  1. ELESTRIN [Suspect]
     Indication: MENOPAUSAL SYMPTOMS
     Dosage: 0.87 GM, 1 IN 1 D
     Route: 061
     Dates: start: 20131025, end: 20131213
  2. PROVERA (MEDROXYPROGESTERONE ACETATE) [Concomitant]

REACTIONS (6)
  - Visual impairment [None]
  - Visual field defect [None]
  - Optic nerve sheath haemorrhage [None]
  - Glaucoma [None]
  - Drug effect incomplete [None]
  - Therapy change [None]
